FAERS Safety Report 8877662 (Version 2)
Quarter: 2012Q4

REPORT INFORMATION
  Report Type: 
  Country: US (occurrence: US)
  Receive Date: 20121024
  Receipt Date: 20121031
  Transmission Date: 20130627
  Serious: Yes (Other)
  Sender: FDA-Public Use
  Company Number: US-009507513-1210USA006115

PATIENT
  Sex: Male

DRUGS (1)
  1. FINASTERIDE [Suspect]
     Indication: ALOPECIA
     Route: 048

REACTIONS (3)
  - Suicidal ideation [Unknown]
  - Depression [Unknown]
  - Sexual dysfunction [Unknown]
